FAERS Safety Report 25315581 (Version 5)
Quarter: 2025Q2

REPORT INFORMATION
  Report Type: Report from Study
  Country: ES (occurrence: ES)
  Receive Date: 20250514
  Receipt Date: 20250625
  Transmission Date: 20250717
  Serious: Yes (Hospitalization, Other)
  Sender: ABBVIE
  Company Number: ES-ABBVIE-6280150

PATIENT
  Age: 68 Year
  Sex: Male

DRUGS (4)
  1. CARBIDOPA\LEVODOPA [Suspect]
     Active Substance: CARBIDOPA\LEVODOPA
     Indication: Parkinson^s disease
     Route: 050
     Dates: start: 20230208
  2. CARBIDOPA\LEVODOPA [Suspect]
     Active Substance: CARBIDOPA\LEVODOPA
     Route: 050
  3. AMANTADINE [Suspect]
     Active Substance: AMANTADINE
     Indication: Product used for unknown indication
     Route: 048
     Dates: start: 2025, end: 202506
  4. NEUPRO [Concomitant]
     Active Substance: ROTIGOTINE
     Indication: Product used for unknown indication
     Dates: end: 202506

REACTIONS (7)
  - Kidney infection [Recovered/Resolved]
  - Hallucination, visual [Recovered/Resolved]
  - On and off phenomenon [Unknown]
  - Tremor [Recovered/Resolved]
  - Abdominal rigidity [Unknown]
  - Stoma site discharge [Unknown]
  - Stoma site odour [Unknown]

NARRATIVE: CASE EVENT DATE: 20250501
